FAERS Safety Report 4752545-2 (Version None)
Quarter: 2005Q3

REPORT INFORMATION
  Report Type: 
  Country: None (occurrence: None)
  Receive Date: 20050823
  Receipt Date: 20050804
  Transmission Date: 20060218
  Serious: Yes (Other)
  Sender: FDA-Public Use
  Company Number: GBS050617553

PATIENT
  Age: 54 Year
  Sex: Female

DRUGS (4)
  1. CYMBALTA [Suspect]
     Indication: DEPRESSION
     Dosage: 60 MG
     Dates: start: 20050401, end: 20050401
  2. PHENELZINE [Concomitant]
  3. LITHIUM CARBONATE [Concomitant]
  4. PROPRANOLOL [Concomitant]

REACTIONS (3)
  - HALLUCINATION, VISUAL [None]
  - NAUSEA [None]
  - VOMITING [None]
